FAERS Safety Report 4332445-2 (Version None)
Quarter: 2004Q2

REPORT INFORMATION
  Report Type: 
  Country: None (occurrence: None)
  Receive Date: 20040401
  Receipt Date: 20040317
  Transmission Date: 20050107
  Serious: Yes (Life-Threatening)
  Sender: FDA-Public Use
  Company Number: 2004-BP-02258PF

PATIENT
  Age: 50 Year
  Sex: Male

DRUGS (6)
  1. SPIRIVA [Suspect]
     Indication: ASTHMA
     Dosage: 18 MCG (18 MCG)
     Route: 055
  2. UNIFYL RETARD (THEOPHYLLINE) (NR) [Concomitant]
  3. PULMICORT [Concomitant]
  4. SINGULAIR (MONTELUKAST SODIUM) (NR) [Concomitant]
  5. COMBIVENT [Concomitant]
  6. APREDNISOLON (PREDNISOLONE) (NR) [Concomitant]

REACTIONS (1)
  - DYSPNOEA [None]
